FAERS Safety Report 18288356 (Version 2)
Quarter: 2020Q4

REPORT INFORMATION
  Report Type: Spontaneous
  Country: US (occurrence: US)
  Receive Date: 20200921
  Receipt Date: 20201021
  Transmission Date: 20210113
  Serious: No
  Sender: FDA-Public Use
  Company Number: US-LEO PHARMA-331127

PATIENT
  Sex: Female

DRUGS (1)
  1. ENSTILAR [Suspect]
     Active Substance: BETAMETHASONE DIPROPIONATE\CALCIPOTRIENE HYDRATE
     Indication: PSORIASIS
     Dosage: APPLIED TOPICALLY TO SKIN FOR PSORIASIS DAILY FOR 6 WEEKS TO PRESENT
     Route: 061

REACTIONS (3)
  - Incorrect product administration duration [Unknown]
  - Psoriasis [Recovered/Resolved]
  - Contusion [Recovered/Resolved]
